FAERS Safety Report 19962146 (Version 1)
Quarter: 2021Q4

REPORT INFORMATION
  Report Type: Spontaneous
  Country: US (occurrence: US)
  Receive Date: 20211018
  Receipt Date: 20211018
  Transmission Date: 20220304
  Serious: No
  Sender: FDA-Public Use
  Company Number: US-STRONGBRIDGE BIOPHARMA-2021-STR-000337

PATIENT
  Age: 54 Year
  Sex: Female

DRUGS (1)
  1. KEVEYIS [Suspect]
     Active Substance: DICHLORPHENAMIDE
     Indication: Familial periodic paralysis
     Dosage: 100 MG, BID
     Route: 048
     Dates: start: 20190928

REACTIONS (3)
  - Dry mouth [Unknown]
  - Feeling abnormal [Unknown]
  - Blood potassium decreased [Unknown]
